FAERS Safety Report 15206931 (Version 1)
Quarter: 2018Q4

REPORT INFORMATION
  Report Type: Spontaneous
  Country: US (occurrence: US)
  Receive Date: 20180727
  Receipt Date: 20180727
  Transmission Date: 20190204
  Serious: Yes (Other)
  Sender: FDA-Public Use
  Company Number: US-HIKMA PHARMACEUTICALS USA INC.-US-H14001-17-04629

PATIENT
  Age: 50 Year
  Sex: Male
  Weight: 83 kg

DRUGS (2)
  1. ALPRAZOLAM. [Concomitant]
     Active Substance: ALPRAZOLAM
     Indication: INSOMNIA
     Route: 065
  2. BUPRENORPHINE AND NALOXONE [Suspect]
     Active Substance: BUPRENORPHINE\NALOXONE
     Indication: DRUG DEPENDENCE
     Dosage: 2MG/0.5MG
     Route: 060
     Dates: start: 20150821, end: 2015

REACTIONS (11)
  - Dizziness [Unknown]
  - Influenza like illness [Unknown]
  - Therapy cessation [Unknown]
  - Insomnia [Unknown]
  - Withdrawal syndrome [Unknown]
  - Hyperhidrosis [Unknown]
  - Tremor [Unknown]
  - Chills [Unknown]
  - Anxiety [Unknown]
  - Rhinorrhoea [Unknown]
  - Feeling cold [Unknown]

NARRATIVE: CASE EVENT DATE: 201508
